FAERS Safety Report 17330384 (Version 2)
Quarter: 2020Q1

REPORT INFORMATION
  Report Type: Spontaneous
  Country: GB (occurrence: GB)
  Receive Date: 20200127
  Receipt Date: 20200225
  Transmission Date: 20200409
  Serious: Yes (Hospitalization)
  Sender: FDA-Public Use
  Company Number: GB-SA-2020SA020084

PATIENT
  Age: 13 Year
  Sex: Female
  Weight: 52 kg

DRUGS (15)
  1. SERETIDE [Concomitant]
     Active Substance: FLUTICASONE PROPIONATE\SALMETEROL XINAFOATE
     Indication: ASTHMA
     Dosage: 1000 UG, QD
     Route: 055
     Dates: start: 2012
  2. PIRITON [Concomitant]
     Active Substance: CHLORPHENIRAMINE MALEATE
     Indication: FEELING ABNORMAL
  3. CETIRIZINE [Concomitant]
     Active Substance: CETIRIZINE HYDROCHLORIDE
     Indication: RHINITIS
     Dosage: 10 MG
     Route: 048
     Dates: start: 2018
  4. TEGRETOL [Concomitant]
     Active Substance: CARBAMAZEPINE
     Indication: EPILEPSY
     Dosage: 800 MG, QD
     Route: 048
     Dates: start: 2017
  5. PREDNISOLONE. [Concomitant]
     Active Substance: PREDNISOLONE
     Dosage: 40 MG, PRN FOR 3-5 DAYS ONLY (ACUTE RESCUE ONLY)
     Route: 048
  6. PIRITON [Concomitant]
     Active Substance: CHLORPHENIRAMINE MALEATE
     Indication: EYE PRURITUS
  7. MONTELUKAST [Concomitant]
     Active Substance: MONTELUKAST SODIUM
     Indication: ASTHMA
     Dosage: 5 MG, QD
     Route: 048
     Dates: start: 2015
  8. TIOTROPIUM [Concomitant]
     Active Substance: TIOTROPIUM
     Indication: ASTHMA
     Dosage: 10 UG, QD
     Route: 055
     Dates: start: 2019
  9. PIRITON [Concomitant]
     Active Substance: CHLORPHENIRAMINE MALEATE
     Indication: HYPERSENSITIVITY
     Dosage: 4 MG, PRN
     Route: 048
  10. DUPIXENT [Suspect]
     Active Substance: DUPILUMAB
     Indication: ASTHMA
     Dosage: 300 MG
     Route: 058
     Dates: start: 20191113, end: 20200121
  11. SALBUTAMOL [Concomitant]
     Active Substance: ALBUTEROL
     Indication: ASTHMA
     Dosage: 2-10 PUFFS
     Route: 055
     Dates: start: 2010
  12. PIRITON [Concomitant]
     Active Substance: CHLORPHENIRAMINE MALEATE
     Indication: VISION BLURRED
  13. PREDNISOLONE. [Concomitant]
     Active Substance: PREDNISOLONE
     Indication: ASTHMA
     Dosage: 5 MG, QD
     Route: 048
     Dates: start: 2018
  14. PIRITON [Concomitant]
     Active Substance: CHLORPHENIRAMINE MALEATE
     Indication: INJECTION SITE PAIN
  15. PIRITON [Concomitant]
     Active Substance: CHLORPHENIRAMINE MALEATE
     Indication: MALAISE

REACTIONS (11)
  - Malaise [Recovering/Resolving]
  - Feeling abnormal [Recovering/Resolving]
  - Eosinophil count increased [Unknown]
  - Peak expiratory flow rate decreased [Recovering/Resolving]
  - Eye pruritus [Recovering/Resolving]
  - Injection site pain [Recovering/Resolving]
  - White blood cell count increased [Unknown]
  - Muscle swelling [Unknown]
  - Vision blurred [Recovering/Resolving]
  - Forced expiratory volume decreased [Unknown]
  - Product use issue [Unknown]

NARRATIVE: CASE EVENT DATE: 20191113
